FAERS Safety Report 9007778 (Version 1)
Quarter: 2013Q1

REPORT INFORMATION
  Report Type: Spontaneous
  Country: US (occurrence: US)
  Receive Date: 20130111
  Receipt Date: 20130111
  Transmission Date: 20140127
  Serious: Yes (Other)
  Sender: FDA-Public Use
  Company Number: US-009507513-0909USA03354

PATIENT
  Age: 7 Year
  Sex: Female
  Weight: 23.59 kg

DRUGS (1)
  1. SINGULAIR [Suspect]
     Indication: MULTIPLE ALLERGIES
     Dosage: 4 MG, QD
     Route: 048
     Dates: start: 20020601, end: 20080320

REACTIONS (8)
  - Abnormal behaviour [Recovered/Resolved]
  - Anger [Recovered/Resolved]
  - Fear [Recovered/Resolved]
  - Insomnia [Unknown]
  - Middle insomnia [Unknown]
  - Mood swings [Recovered/Resolved]
  - Nightmare [Unknown]
  - Personality change [Recovered/Resolved]
